FAERS Safety Report 7668282-0 (Version None)
Quarter: 2011Q3

REPORT INFORMATION
  Report Type: 
  Country: None (occurrence: None)
  Receive Date: 20110808
  Receipt Date: 20110804
  Transmission Date: 20111222
  Serious: Yes (Disabling, Other)
  Sender: FDA-Public Use
  Company Number: US-PFIZER INC-2011039679

PATIENT
  Sex: Female

DRUGS (6)
  1. WELLBUTRIN [Concomitant]
     Indication: DEPRESSION
     Dosage: UNK
     Dates: start: 20040801
  2. HYDROCHLOROTHIAZIDE [Concomitant]
     Indication: BLOOD PRESSURE
     Dosage: UNK
     Dates: start: 20010501
  3. POTASSIUM CHLORIDE [Concomitant]
     Indication: BLOOD PRESSURE
     Dosage: UNK
     Dates: start: 20010501
  4. LIPITOR [Concomitant]
     Indication: BLOOD CHOLESTEROL
     Dosage: UNK
     Dates: start: 20060701
  5. CHANTIX [Suspect]
     Indication: SMOKING CESSATION THERAPY
     Dosage: STARTER PACK
     Dates: start: 20081201, end: 20090101
  6. NORVASC [Concomitant]
     Indication: BLOOD PRESSURE
     Dosage: UNK
     Dates: start: 20060201

REACTIONS (8)
  - DEPRESSION [None]
  - TINNITUS [None]
  - AMNESIA [None]
  - POST-TRAUMATIC STRESS DISORDER [None]
  - INSOMNIA [None]
  - DIZZINESS [None]
  - SUICIDAL IDEATION [None]
  - TACHYCARDIA [None]
